FAERS Safety Report 6091040-8 (Version None)
Quarter: 2009Q1

REPORT INFORMATION
  Report Type: 
  Country: None (occurrence: None)
  Receive Date: 20090225
  Receipt Date: 20090220
  Transmission Date: 20090719
  Serious: Yes (Other)
  Sender: FDA-Public Use
  Company Number: CA-ASTRAZENECA-2009UW04875

PATIENT
  Age: 67 Year
  Sex: Male

DRUGS (2)
  1. ZOLADEX [Suspect]
     Indication: PROSTATE CANCER
     Route: 058
     Dates: start: 20070101, end: 20080825
  2. CASODEX [Suspect]
     Route: 048
     Dates: start: 20070101, end: 20081019

REACTIONS (5)
  - DEPRESSION [None]
  - ERECTILE DYSFUNCTION [None]
  - NERVOUSNESS [None]
  - PRURITUS [None]
  - SUICIDAL IDEATION [None]
